FAERS Safety Report 16730209 (Version 1)
Quarter: 2019Q4

REPORT INFORMATION
  Report Type: Spontaneous
  Country: US (occurrence: US)
  Receive Date: 20190821
  Receipt Date: 20190821
  Transmission Date: 20200122
  Serious: Yes (Disabling)
  Sender: FDA-Public Use
  Company Number: None

PATIENT
  Age: 70 Year
  Sex: Female
  Weight: 43.65 kg

DRUGS (11)
  1. PROLIA [Suspect]
     Active Substance: DENOSUMAB
     Indication: OSTEOPOROSIS
     Dosage: ?          OTHER FREQUENCY:EVERY 6 MONTHS;?
     Route: 058
     Dates: start: 20190722
  2. LATANOPROST EYE DROPS [Concomitant]
     Active Substance: LATANOPROST
  3. L-GLUTAMINE [Concomitant]
  4. DIGESTIVE ENZYMES [Concomitant]
     Active Substance: UNSPECIFIED INGREDIENT
  5. PROLIA [Concomitant]
     Active Substance: DENOSUMAB
  6. VITAMINS D3 [Concomitant]
  7. MULTIVITAMIN [Concomitant]
     Active Substance: VITAMINS
  8. CALCIUM [Concomitant]
     Active Substance: CALCIUM
  9. AMERICAN GINSENG. [Concomitant]
     Active Substance: AMERICAN GINSENG
  10. PROBIOTIC [Concomitant]
     Active Substance: PROBIOTICS NOS
  11. VITAMIN B12 [Concomitant]
     Active Substance: CYANOCOBALAMIN

REACTIONS (5)
  - Irritable bowel syndrome [None]
  - Neck pain [None]
  - Pain in extremity [None]
  - Injection site pain [None]
  - Dizziness [None]

NARRATIVE: CASE EVENT DATE: 20190814
